FAERS Safety Report 10630341 (Version 2)
Quarter: 2014Q4

REPORT INFORMATION
  Report Type: Spontaneous
  Country: US (occurrence: US)
  Receive Date: 20141205
  Receipt Date: 20141205
  Transmission Date: 20150529
  Serious: No
  Sender: FDA-Public Use
  Company Number: US-BRISTOL-MYERS SQUIBB COMPANY-21359138

PATIENT
  Sex: Female

DRUGS (1)
  1. ABILIFY [Suspect]
     Active Substance: ARIPIPRAZOLE
     Dosage: 5MG OR 2MG AND 10MG SAMPLES

REACTIONS (3)
  - Abnormal behaviour [Unknown]
  - Mental impairment [Unknown]
  - Drug dose omission [Unknown]
